FAERS Safety Report 7900665-3 (Version None)
Quarter: 2011Q4

REPORT INFORMATION
  Report Type: 
  Country: None (occurrence: None)
  Receive Date: 20111104
  Receipt Date: 20111025
  Transmission Date: 20120403
  Serious: Yes (Death)
  Sender: FDA-Public Use
  Company Number: EU-2011-10103

PATIENT

DRUGS (1)
  1. SAMSCA [Suspect]
     Indication: INAPPROPRIATE ANTIDIURETIC HORMONE SECRETION
     Dosage: 15 MG MILLIGRAM(S), SINGLE, ORAL : 7.5 MG MILLIGRAM(S), ORAL : 30 MG MILLIGRAM(S), ORAL
     Route: 048

REACTIONS (2)
  - BLOOD SODIUM DECREASED [None]
  - WRONG TECHNIQUE IN DRUG USAGE PROCESS [None]
